FAERS Safety Report 4746538-9 (Version None)
Quarter: 2005Q3

REPORT INFORMATION
  Report Type: 
  Country: None (occurrence: None)
  Receive Date: 20050815
  Receipt Date: 20050803
  Transmission Date: 20060218
  Serious: Yes (Hospitalization, Other)
  Sender: FDA-Public Use
  Company Number: USA050597742

PATIENT
  Age: 68 Year
  Sex: Female
  Weight: 72 kg

DRUGS (12)
  1. FORTEO [Suspect]
     Indication: OSTEOPOROSIS
     Dosage: 20 UG DAY
     Dates: start: 20040901
  2. FOSAMAX [Concomitant]
  3. CALCIUM GLUCONATE [Concomitant]
  4. VITAMIN D [Concomitant]
  5. PROTONIX [Concomitant]
  6. DIOVAN [Concomitant]
  7. RELATENE (KETOPROFEN) [Concomitant]
  8. PREDNISONE [Concomitant]
  9. NASONEX [Concomitant]
  10. MULTI-VITAMIN [Concomitant]
  11. DURAGESIC-100 [Concomitant]
  12. PERCOCET [Concomitant]

REACTIONS (3)
  - BLOOD ALBUMIN DECREASED [None]
  - DEHYDRATION [None]
  - HYPERCALCAEMIA [None]
